FAERS Safety Report 5464195-3 (Version None)
Quarter: 2007Q3

REPORT INFORMATION
  Report Type: 
  Country: None (occurrence: None)
  Receive Date: 20070921
  Receipt Date: 20070911
  Transmission Date: 20080115
  Serious: Yes (Hospitalization)
  Sender: FDA-Public Use
  Company Number: US-AVENTIS-200716522US

PATIENT
  Sex: Male

DRUGS (2)
  1. LANTUS [Suspect]
     Dosage: DOSE: UNK
     Dates: start: 20070101
  2. APIDRA [Suspect]
     Dosage: DOSE: UNK
     Dates: start: 20070101

REACTIONS (2)
  - ANTI-INSULIN ANTIBODY POSITIVE [None]
  - INSULIN RESISTANCE [None]
